FAERS Safety Report 18473192 (Version 1)
Quarter: 2020Q4

REPORT INFORMATION
  Report Type: Spontaneous
  Country: IT (occurrence: IT)
  Receive Date: 20201106
  Receipt Date: 20201106
  Transmission Date: 20210114
  Serious: Yes (Other)
  Sender: FDA-Public Use
  Company Number: IT-FRESENIUS KABI-FK202011706

PATIENT
  Age: 71 Year
  Sex: Male

DRUGS (2)
  1. OXALIPLATIN (MANUFACTURER UNKNOWN) [Suspect]
     Active Substance: OXALIPLATIN
     Indication: ADENOCARCINOMA GASTRIC
     Dosage: 120 MG/M2 ON DAY 1 TWICE EVERY DAY FOR 14 DAYS IN A CYCLE OF 21 DAYS
     Route: 065
     Dates: start: 201809
  2. CAPECITABINE. [Suspect]
     Active Substance: CAPECITABINE
     Indication: ADENOCARCINOMA GASTRIC
     Dosage: 825 MG/MQ2 TWICE EVERY DAY FOR 14 DAYS IN A CYCLE OF 21 DAYS
     Route: 065
     Dates: start: 201809

REACTIONS (6)
  - Diarrhoea [Recovered/Resolved]
  - Necrosis [Unknown]
  - Abdominal distension [Unknown]
  - Fatigue [Unknown]
  - Diarrhoea [Recovered/Resolved]
  - Hepatic infarction [Unknown]

NARRATIVE: CASE EVENT DATE: 201902
